FAERS Safety Report 6326903-9 (Version None)
Quarter: 2009Q3

REPORT INFORMATION
  Report Type: 
  Country: None (occurrence: None)
  Receive Date: 20090825
  Receipt Date: 20090817
  Transmission Date: 20100115
  Serious: Yes (Other)
  Sender: FDA-Public Use
  Company Number: PL-PFIZER INC-2009240392

PATIENT
  Age: 19 Year

DRUGS (1)
  1. DALACIN [Suspect]
     Dosage: TDD 600MG
     Route: 048
     Dates: start: 20090527, end: 20090602

REACTIONS (2)
  - ANGIOEDEMA [None]
  - URTICARIA [None]
